FAERS Safety Report 4963458-5 (Version None)
Quarter: 2006Q2

REPORT INFORMATION
  Report Type: 
  Country: None (occurrence: None)
  Receive Date: 20060404
  Receipt Date: 20060404
  Transmission Date: 20061013
  Serious: Yes (Hospitalization)
  Sender: FDA-Public Use
  Company Number: None

PATIENT
  Age: 80 Year
  Sex: Male
  Weight: 84.369 kg

DRUGS (2)
  1. NAPROXEN [Suspect]
     Dosage: 500 MG PO BID
     Route: 048
  2. ASPIRIN [Suspect]
     Dosage: 81 MG PO QD
     Route: 048

REACTIONS (1)
  - GASTROINTESTINAL HAEMORRHAGE [None]
